FAERS Safety Report 12242902 (Version 3)
Quarter: 2018Q1

REPORT INFORMATION
  Report Type: Spontaneous
  Country: AU (occurrence: AU)
  Receive Date: 20160406
  Receipt Date: 20180220
  Transmission Date: 20180508
  Serious: Yes (Hospitalization, Other)
  Sender: FDA-Public Use
  Company Number: AU-OTSUKA-2016_007385

PATIENT
  Age: 38 Year
  Sex: Male

DRUGS (2)
  1. ABILIFY [Suspect]
     Active Substance: ARIPIPRAZOLE
     Indication: SCHIZOPHRENIA
     Dosage: 30 MG, QD
     Route: 048
  2. ABILIFY MAINTENA [Suspect]
     Active Substance: ARIPIPRAZOLE
     Indication: SCHIZOPHRENIA
     Dosage: 400 MG, QM
     Route: 030

REACTIONS (7)
  - Aggression [Unknown]
  - Drug monitoring procedure incorrectly performed [Unknown]
  - Euphoric mood [Unknown]
  - Overdose [Unknown]
  - Mania [Unknown]
  - Abnormal behaviour [Unknown]
  - Irritability [Unknown]
